FAERS Safety Report 15937057 (Version 1)
Quarter: 2019Q1

REPORT INFORMATION
  Report Type: Spontaneous
  Country: PL (occurrence: PL)
  Receive Date: 20190208
  Receipt Date: 20190208
  Transmission Date: 20190417
  Serious: Yes (Hospitalization)
  Sender: FDA-Public Use
  Company Number: PL-TEVA-788093ISR

PATIENT
  Age: 62 Year
  Sex: Female

DRUGS (4)
  1. MOCLOBENIDE [Interacting]
     Active Substance: MOCLOBEMIDE
  2. ZOLPIDEM [Suspect]
     Active Substance: ZOLPIDEM\ZOLPIDEM TARTRATE
     Indication: INSOMNIA
     Route: 048
  3. VENLAFAXINE [Interacting]
     Active Substance: VENLAFAXINE HYDROCHLORIDE
     Indication: DEPRESSION
     Dosage: MODIFIED RELEASE
     Route: 065
  4. SERTRALINE [Suspect]
     Active Substance: SERTRALINE HYDROCHLORIDE
     Indication: DEPRESSION

REACTIONS (5)
  - Insomnia [Unknown]
  - Fatigue [Unknown]
  - Syncope [Unknown]
  - Sinus tachycardia [Unknown]
  - Drug interaction [Unknown]
